FAERS Safety Report 17075599 (Version 1)
Quarter: 2019Q4

REPORT INFORMATION
  Report Type: Spontaneous
  Country: US (occurrence: US)
  Receive Date: 20191126
  Receipt Date: 20191126
  Transmission Date: 20200122
  Serious: Yes (Other)
  Sender: FDA-Public Use
  Company Number: US-PFIZER INC-2019508521

PATIENT
  Age: 35 Year
  Sex: Female

DRUGS (11)
  1. CELEBREX [Concomitant]
     Active Substance: CELECOXIB
     Dosage: 200 MG, UNK
  2. DICYCLOMINE HCL [Concomitant]
     Active Substance: DICYCLOMINE HYDROCHLORIDE
     Dosage: 20 MG, UNK
  3. XELJANZ [Suspect]
     Active Substance: TOFACITINIB CITRATE
     Indication: COLITIS
  4. BUDESONIDE. [Concomitant]
     Active Substance: BUDESONIDE
     Dosage: 3 MG, UNK
  5. VITAMIN D3 [Concomitant]
     Active Substance: CHOLECALCIFEROL
     Dosage: 1000 IU, UNK
  6. VITAMIN B12 [Concomitant]
     Active Substance: CYANOCOBALAMIN
     Dosage: 2500 UG, UNK
  7. DOXEPIN HCL [Concomitant]
     Active Substance: DOXEPIN HYDROCHLORIDE
     Dosage: 25 MG, UNK
  8. XELJANZ [Suspect]
     Active Substance: TOFACITINIB CITRATE
     Indication: CROHN^S DISEASE
     Dosage: 5 MG, 2X/DAY
     Route: 048
     Dates: start: 201906
  9. XELJANZ [Suspect]
     Active Substance: TOFACITINIB CITRATE
     Indication: PSORIASIS
     Dosage: 10 MG, 2X/DAY
  10. XANAX [Concomitant]
     Active Substance: ALPRAZOLAM
     Dosage: 0.5 MG, UNK
  11. DROSPIRENONE/ETHINYLESTRADIOL [Concomitant]
     Active Substance: DROSPIRENONE\ETHINYL ESTRADIOL
     Dosage: UNK

REACTIONS (3)
  - Respiratory tract infection [Unknown]
  - Peripheral swelling [Unknown]
  - Streptococcal urinary tract infection [Unknown]

NARRATIVE: CASE EVENT DATE: 20191119
